FAERS Safety Report 4786813-5 (Version None)
Quarter: 2005Q4

REPORT INFORMATION
  Report Type: 
  Country: None (occurrence: None)
  Receive Date: 20051004
  Receipt Date: 20050922
  Transmission Date: 20060501
  Serious: Yes (Other)
  Sender: FDA-Public Use
  Company Number: 2005UW14085

PATIENT
  Age: 22 Year
  Sex: Female

DRUGS (3)
  1. SEROQUEL [Suspect]
     Route: 048
  2. ATIVAN [Suspect]
  3. TRAZODONE [Suspect]

REACTIONS (5)
  - HYPOTENSION [None]
  - INTENTIONAL DRUG MISUSE [None]
  - MULTIPLE DRUG OVERDOSE [None]
  - SOMNOLENCE [None]
  - TACHYCARDIA [None]
